FAERS Safety Report 19586914 (Version 1)
Quarter: 2021Q3

REPORT INFORMATION
  Report Type: Spontaneous
  Country: US (occurrence: US)
  Receive Date: 20210721
  Receipt Date: 20210721
  Transmission Date: 20211014
  Serious: No
  Sender: FDA-Public Use
  Company Number: US-ELI_LILLY_AND_COMPANY-US202107008268

PATIENT
  Sex: Female

DRUGS (1)
  1. EMGALITY [Suspect]
     Active Substance: GALCANEZUMAB-GNLM
     Indication: PRODUCT USED FOR UNKNOWN INDICATION
     Dosage: 240 MG, SINGLE
     Route: 065
     Dates: start: 20210712

REACTIONS (8)
  - Hypoaesthesia [Recovered/Resolved]
  - Insomnia [Unknown]
  - Hyperhidrosis [Unknown]
  - Paraesthesia [Unknown]
  - Visual impairment [Unknown]
  - Dry mouth [Unknown]
  - Tinnitus [Not Recovered/Not Resolved]
  - Drug hypersensitivity [Unknown]

NARRATIVE: CASE EVENT DATE: 20210715
